FAERS Safety Report 5356361-2 (Version None)
Quarter: 2007Q2

REPORT INFORMATION
  Report Type: 
  Country: None (occurrence: None)
  Receive Date: 20070613
  Receipt Date: 20070605
  Transmission Date: 20071010
  Serious: Yes (Other)
  Sender: FDA-Public Use
  Company Number: US-PFIZER INC-2007046848

PATIENT
  Sex: Female
  Weight: 53.5 kg

DRUGS (4)
  1. CHANTIX [Suspect]
     Indication: SMOKING CESSATION THERAPY
     Route: 048
     Dates: start: 20070501, end: 20070101
  2. ZOLOFT [Suspect]
     Indication: DEPRESSION
     Route: 048
  3. ZOLOFT [Suspect]
     Indication: NERVOUSNESS
  4. ZOLOFT [Suspect]
     Indication: PANIC ATTACK

REACTIONS (7)
  - BACK PAIN [None]
  - DRUG SCREEN POSITIVE [None]
  - FALL [None]
  - FRACTURED COCCYX [None]
  - INTERVERTEBRAL DISC DISORDER [None]
  - NAUSEA [None]
  - VOMITING IN PREGNANCY [None]
